FAERS Safety Report 7488526-8 (Version None)
Quarter: 2011Q2

REPORT INFORMATION
  Report Type: 
  Country: None (occurrence: None)
  Receive Date: 20110511
  Receipt Date: 20110503
  Transmission Date: 20111010
  Serious: Yes (Hospitalization)
  Sender: FDA-Public Use
  Company Number: ZYD-11-AE-080

PATIENT
  Age: 82 Year
  Sex: Male

DRUGS (23)
  1. COZAAR [Concomitant]
  2. NEXIUM [Concomitant]
  3. QUININE SULFATE [Concomitant]
  4. ZOCOR [Concomitant]
  5. PAIN PUM (UNSPECIFIED MEDICATION) [Concomitant]
  6. PREDNISONE [Concomitant]
  7. UROXATRAL [Concomitant]
  8. SODIUM BICARBONATE [Concomitant]
  9. VITAMIN D [Concomitant]
  10. BISOPROLOL FUMARATE [Concomitant]
  11. LOMOTIL [Concomitant]
  12. MULTI-VITAMIN [Concomitant]
  13. AZATHIOPRINE [Suspect]
     Indication: MYASTHENIA GRAVIS
     Dosage: 50MG-DAILY-ORAL
     Route: 048
     Dates: end: 20110101
  14. MESTINON [Concomitant]
  15. GLUCOSAMINE SULFATE [Concomitant]
  16. RENAL SOFTGEL [Concomitant]
  17. PLAVIX [Concomitant]
  18. ASPIRIN [Concomitant]
  19. IMURAN [Concomitant]
  20. CLONAZEPAM [Concomitant]
  21. FLEXERIL [Concomitant]
  22. ASCORBIC ACID [Concomitant]
  23. OMEGA FISH OIL [Concomitant]

REACTIONS (4)
  - PARALYSIS [None]
  - BODY TEMPERATURE INCREASED [None]
  - CHILLS [None]
  - FEELING COLD [None]
